FAERS Safety Report 14942443 (Version 2)
Quarter: 2018Q2

REPORT INFORMATION
  Report Type: Spontaneous
  Country: ES (occurrence: ES)
  Receive Date: 20180528
  Receipt Date: 20180611
  Transmission Date: 20180711
  Serious: Yes (Hospitalization, Other)
  Sender: FDA-Public Use
  Company Number: ES-BRISTOL-MYERS SQUIBB COMPANY-BMS-2018-044744

PATIENT
  Age: 42 Year
  Sex: Female

DRUGS (3)
  1. ORENCIA [Suspect]
     Active Substance: ABATACEPT
     Indication: ANKYLOSING SPONDYLITIS
     Dosage: 750 MG, QMO
     Route: 058
     Dates: start: 20090401, end: 20131013
  2. HUMIRA [Interacting]
     Active Substance: ADALIMUMAB
     Indication: ANKYLOSING SPONDYLITIS
     Dosage: 40 MG, 15 DAY
     Route: 058
     Dates: start: 20080101, end: 20080630
  3. ENBREL [Interacting]
     Active Substance: ETANERCEPT
     Indication: ANKYLOSING SPONDYLITIS
     Dosage: 50 MG, QWK
     Route: 058
     Dates: start: 20090201, end: 20090315

REACTIONS (4)
  - Contraindicated product administered [Unknown]
  - Product use in unapproved indication [Unknown]
  - Renal cell carcinoma [Unknown]
  - Drug interaction [Unknown]

NARRATIVE: CASE EVENT DATE: 20171009
